FAERS Safety Report 9485188 (Version 1)
Quarter: 2013Q3

REPORT INFORMATION
  Report Type: Spontaneous
  Country: US (occurrence: US)
  Receive Date: 20130828
  Receipt Date: 20130828
  Transmission Date: 20140515
  Serious: Yes (Other)
  Sender: FDA-Public Use
  Company Number: US-FRI-1000048166

PATIENT
  Age: 67 Year
  Sex: Female

DRUGS (2)
  1. TUDORZA PRESSAIR [Suspect]
     Indication: CHRONIC OBSTRUCTIVE PULMONARY DISEASE
     Dosage: 900 MCG
     Route: 055
     Dates: start: 201305
  2. AMLODIPINE [Concomitant]
     Indication: HYPERTENSION

REACTIONS (1)
  - Urinary tract infection [Recovered/Resolved]
